FAERS Safety Report 19152426 (Version 1)
Quarter: 2021Q2

REPORT INFORMATION
  Report Type: Spontaneous
  Country: US (occurrence: US)
  Receive Date: 20210416
  Receipt Date: 20210416
  Transmission Date: 20210717
  Serious: Yes (Other)
  Sender: FDA-Public Use
  Company Number: None

PATIENT
  Age: 76 Year
  Sex: Female
  Weight: 61.56 kg

DRUGS (12)
  1. CBD OIL [Concomitant]
     Active Substance: CANNABIDIOL\HERBALS
  2. LOPERAMIDE [Concomitant]
     Active Substance: LOPERAMIDE
  3. VITMAIN D3 [Concomitant]
  4. GARLIC OIL [Concomitant]
     Active Substance: GARLIC OIL
  5. AMLODIPINE [Concomitant]
     Active Substance: AMLODIPINE BESYLATE
  6. CALCIUM [Concomitant]
     Active Substance: CALCIUM
  7. EXEMESTANE. [Suspect]
     Active Substance: EXEMESTANE
     Indication: BREAST CANCER
     Route: 048
     Dates: start: 20200919, end: 20210416
  8. ASPIRIN. [Concomitant]
     Active Substance: ASPIRIN
  9. ATENOLOL. [Concomitant]
     Active Substance: ATENOLOL
  10. LOVASTATIN. [Concomitant]
     Active Substance: LOVASTATIN
  11. MULTIVITAMIN [Concomitant]
     Active Substance: VITAMINS
  12. CITALOPRAM [Concomitant]
     Active Substance: CITALOPRAM HYDROBROMIDE

REACTIONS (3)
  - Fatigue [None]
  - Insomnia [None]
  - Diarrhoea [None]

NARRATIVE: CASE EVENT DATE: 20210416
